FAERS Safety Report 9366107 (Version 3)
Quarter: 2013Q3

REPORT INFORMATION
  Report Type: Spontaneous
  Country: CA (occurrence: None)
  Receive Date: 20130619
  Receipt Date: 20130925
  Transmission Date: 20140515
  Serious: Yes (Hospitalization)
  Sender: FDA-Public Use
  Company Number: 2013SGN00355

PATIENT
  Age: 29 Year
  Sex: Female

DRUGS (1)
  1. ADCETRIS (BRENTUXIMAB VEDOTIN) INJECTION [Suspect]
     Indication: HODGKIN^S DISEASE
     Dosage: TOOK TWO DOSES BEFORE DOSING WAS DELAYED DUE TO ADVERSE EVENT.
     Route: 042
     Dates: start: 2013

REACTIONS (2)
  - Lower respiratory tract infection [None]
  - Pneumonia bacterial [None]
